FAERS Safety Report 17229482 (Version 1)
Quarter: 2019Q4

REPORT INFORMATION
  Report Type: Spontaneous
  Country: US (occurrence: US)
  Receive Date: 20191210
  Receipt Date: 20191210
  Transmission Date: 20200122
  Serious: No
  Sender: FDA-Public Use
  Company Number: None

PATIENT
  Age: 55 Year
  Sex: Female

DRUGS (12)
  1. LEVOCETIRIZI [Concomitant]
  2. SUCRALFATE. [Concomitant]
     Active Substance: SUCRALFATE
  3. VANCOMOCIN [Concomitant]
  4. HUMIRA [Suspect]
     Active Substance: ADALIMUMAB
     Dosage: ?          OTHER FREQUENCY:TWICEAMONTH ;?
     Dates: start: 20191018
  5. LEVOTHYRIXIN [Concomitant]
  6. CARVEDILOL. [Concomitant]
     Active Substance: CARVEDILOL
  7. FLUTICASONE. [Concomitant]
     Active Substance: FLUTICASONE
  8. ISOSORB MONO [Concomitant]
     Active Substance: ISOSORBIDE MONONITRATE
  9. THEOPHYLINE [Concomitant]
     Active Substance: THEOPHYLLINE ANHYDROUS
  10. APRISO [Concomitant]
     Active Substance: MESALAMINE
  11. CARVEDILOL. [Suspect]
     Active Substance: CARVEDILOL
  12. MONTELUKAST [Concomitant]
     Active Substance: MONTELUKAST SODIUM

REACTIONS (1)
  - Hospitalisation [None]
